FAERS Safety Report 19129777 (Version 1)
Quarter: 2021Q2

REPORT INFORMATION
  Report Type: Spontaneous
  Country: US (occurrence: US)
  Receive Date: 20210413
  Receipt Date: 20210413
  Transmission Date: 20210717
  Serious: Yes (Death)
  Sender: FDA-Public Use
  Company Number: US-ROCHE-2807644

PATIENT
  Age: 86 Year
  Sex: Male

DRUGS (9)
  1. GALANTAMINE. [Concomitant]
     Active Substance: GALANTAMINE
  2. MYRBETRIQ [Concomitant]
     Active Substance: MIRABEGRON
  3. ESCITALOPRAM [Concomitant]
     Active Substance: ESCITALOPRAM OXALATE
  4. FINASTERIDE. [Concomitant]
     Active Substance: FINASTERIDE
  5. LATANOPROST. [Concomitant]
     Active Substance: LATANOPROST
  6. LAMOTRIGINE. [Concomitant]
     Active Substance: LAMOTRIGINE
  7. OLMESARTAN [Concomitant]
     Active Substance: OLMESARTAN
  8. ZELBORAF [Suspect]
     Active Substance: VEMURAFENIB
     Indication: MALIGNANT MELANOMA
     Dosage: TAKE 720 MG BY MOUTH TWICE A DAY APPROX 12 HOURS APART.
     Route: 048
     Dates: start: 20210316
  9. ZOLPIDEM TARTRATE. [Concomitant]
     Active Substance: ZOLPIDEM TARTRATE

REACTIONS (1)
  - Death [Fatal]

NARRATIVE: CASE EVENT DATE: 20210406
